FAERS Safety Report 5056923-6 (Version None)
Quarter: 2006Q2

REPORT INFORMATION
  Report Type: 
  Country: None (occurrence: None)
  Receive Date: 20060620
  Receipt Date: 20050404
  Transmission Date: 20061013
  Serious: No
  Sender: FDA-Public Use
  Company Number: MK200504-0026-1

PATIENT
  Sex: Female

DRUGS (1)
  1. OPTIRAY 350 [Suspect]
     Indication: HAEMATURIA
     Dosage: 100 ML,ONE TIME, IV
     Route: 042
     Dates: start: 20050324, end: 20050324

REACTIONS (7)
  - ABDOMINAL PAIN UPPER [None]
  - DYSPNOEA [None]
  - ERYTHEMA [None]
  - NAUSEA [None]
  - RALES [None]
  - THROAT IRRITATION [None]
  - WHEEZING [None]
